FAERS Safety Report 9818590 (Version 3)
Quarter: 2014Q4

REPORT INFORMATION
  Report Type: Spontaneous
  Country: US (occurrence: US)
  Receive Date: 20140115
  Receipt Date: 20141222
  Transmission Date: 20150529
  Serious: Yes (Death, Life-Threatening, Hospitalization, Other)
  Sender: FDA-Public Use
  Company Number: US-MERCK-1401USA004775

PATIENT
  Sex: Female
  Weight: 62.59 kg

DRUGS (4)
  1. ACTOS [Concomitant]
     Active Substance: PIOGLITAZONE HYDROCHLORIDE
     Indication: TYPE 2 DIABETES MELLITUS
     Dosage: 45 MG, QD
     Route: 048
     Dates: start: 20110307
  2. METFORMIN [Concomitant]
     Active Substance: METFORMIN HYDROCHLORIDE
     Indication: TYPE 2 DIABETES MELLITUS
     Dosage: 1000 MG, BID
     Route: 048
     Dates: start: 20110307
  3. JANUVIA [Suspect]
     Active Substance: SITAGLIPTIN PHOSPHATE
     Indication: TYPE 2 DIABETES MELLITUS
     Dosage: 100 MG, QD
     Route: 048
     Dates: start: 20100604, end: 20120616
  4. INSULIN [Concomitant]
     Active Substance: INSULIN NOS
     Indication: TYPE 2 DIABETES MELLITUS

REACTIONS (22)
  - Epilepsy [Unknown]
  - Arthritis [Unknown]
  - Anxiety [Unknown]
  - Pancreatitis [Unknown]
  - Stent placement [Unknown]
  - Hypertension [Unknown]
  - Cataract operation [Unknown]
  - Wheezing [Unknown]
  - Stent placement [Unknown]
  - Osteoporosis [Unknown]
  - Meniscus removal [Unknown]
  - Neuropathy peripheral [Unknown]
  - Chest discomfort [Unknown]
  - Pancreatic carcinoma [Fatal]
  - Flank pain [Unknown]
  - Back pain [Unknown]
  - Intestinal stent insertion [Unknown]
  - Portal vein thrombosis [Unknown]
  - Type V hyperlipidaemia [Unknown]
  - Flatulence [Unknown]
  - Endoscopic retrograde cholangiopancreatography [Unknown]
  - Tonsillectomy [Unknown]

NARRATIVE: CASE EVENT DATE: 20101210
